FAERS Safety Report 8537926-3 (Version None)
Quarter: 2012Q3

REPORT INFORMATION
  Report Type: 
  Country: None (occurrence: None)
  Receive Date: 20120725
  Receipt Date: 20120717
  Transmission Date: 20120928
  Serious: Yes (Hospitalization)
  Sender: FDA-Public Use
  Company Number: JP-GLAXOSMITHKLINE-B0816054A

PATIENT
  Age: 33 Year
  Sex: Male

DRUGS (3)
  1. MESALAMINE [Suspect]
     Route: 048
  2. ZANTAC [Suspect]
     Route: 048
  3. INFLIXIMAB [Concomitant]
     Route: 042

REACTIONS (3)
  - TUBULOINTERSTITIAL NEPHRITIS [None]
  - RENAL IMPAIRMENT [None]
  - C-REACTIVE PROTEIN INCREASED [None]
